FAERS Safety Report 23675528 (Version 1)
Quarter: 2024Q1

REPORT INFORMATION
  Report Type: Spontaneous
  Country: FR (occurrence: FR)
  Receive Date: 20240327
  Receipt Date: 20240327
  Transmission Date: 20240410
  Serious: Yes (Hospitalization, Other)
  Sender: FDA-Public Use
  Company Number: FR-AFSSAPS-DJ2024000384

PATIENT
  Age: 66 Year
  Sex: Male

DRUGS (2)
  1. LEVOFLOXACIN [Suspect]
     Active Substance: LEVOFLOXACIN
     Indication: Osteitis
     Dosage: 250 MILLIGRAM, ONCE A DAY
     Route: 048
     Dates: start: 20240116, end: 20240202
  2. FUSIDATE SODIUM [Suspect]
     Active Substance: FUSIDATE SODIUM
     Indication: Osteitis
     Dosage: 1500 MILLIGRAM, ONCE A DAY (250X6/J)
     Route: 048
     Dates: start: 20240116, end: 20240202

REACTIONS (1)
  - Bicytopenia [Recovered/Resolved]

NARRATIVE: CASE EVENT DATE: 20240202
